FAERS Safety Report 18551298 (Version 1)
Quarter: 2020Q4

REPORT INFORMATION
  Report Type: Spontaneous
  Country: DE (occurrence: DE)
  Receive Date: 20201126
  Receipt Date: 20201126
  Transmission Date: 20210114
  Serious: Yes (Death, Hospitalization, Other)
  Sender: FDA-Public Use
  Company Number: DE-FRESENIUS KABI-FK202012364

PATIENT
  Age: 31 Year
  Sex: Female

DRUGS (5)
  1. CARBOPLATIN (MANUFACTURER UNKNOWN) [Suspect]
     Active Substance: CARBOPLATIN
     Indication: OVARIAN CANCER
     Route: 065
     Dates: start: 200901, end: 200906
  2. CARBOPLATIN (MANUFACTURER UNKNOWN) [Suspect]
     Active Substance: CARBOPLATIN
     Route: 065
     Dates: start: 201909, end: 201911
  3. FULVESTRANT. [Suspect]
     Active Substance: FULVESTRANT
     Indication: OVARIAN CANCER
     Route: 030
     Dates: start: 201902, end: 201905
  4. NIVOLUMAB [Concomitant]
     Active Substance: NIVOLUMAB
     Indication: PRODUCT USED FOR UNKNOWN INDICATION
     Route: 065
     Dates: start: 201906, end: 201908
  5. ABEMACICLIB [Concomitant]
     Active Substance: ABEMACICLIB
     Indication: PRODUCT USED FOR UNKNOWN INDICATION
     Route: 065
     Dates: start: 201902, end: 201905

REACTIONS (15)
  - Pneumonia [Fatal]
  - Respiratory failure [Fatal]
  - Dyspnoea [Unknown]
  - Lymphangiosis carcinomatosa [Unknown]
  - Malignant peritoneal neoplasm [Unknown]
  - Metastases to pleura [Unknown]
  - Achromobacter infection [Unknown]
  - Erythema [Unknown]
  - Weight increased [Unknown]
  - Off label use [Recovered/Resolved]
  - Drug hypersensitivity [Unknown]
  - Metastases to lung [Unknown]
  - Metastases to thorax [Unknown]
  - Malignant neoplasm progression [Unknown]
  - Seroma [Unknown]

NARRATIVE: CASE EVENT DATE: 201902
